FAERS Safety Report 7229716-9 (Version None)
Quarter: 2011Q1

REPORT INFORMATION
  Report Type: 
  Country: None (occurrence: None)
  Receive Date: 20110117
  Receipt Date: 20110107
  Transmission Date: 20110831
  Serious: Yes (Other)
  Sender: FDA-Public Use
  Company Number: US-PURDUE-USA-2010-0061057

PATIENT
  Sex: Female

DRUGS (2)
  1. OXYCONTIN [Suspect]
     Dosage: 40 MG, SEE TEXT
     Route: 048
     Dates: end: 20101201
  2. OXYCONTIN [Suspect]
     Indication: PAIN
     Dosage: 80 MG, SEE TEXT
     Route: 048
     Dates: start: 20100101, end: 20101201

REACTIONS (10)
  - HEART RATE IRREGULAR [None]
  - HEART RATE DECREASED [None]
  - NAUSEA [None]
  - MEDICATION RESIDUE [None]
  - WEIGHT DECREASED [None]
  - DERMATITIS ALLERGIC [None]
  - VOMITING [None]
  - SYNCOPE [None]
  - COUGH [None]
  - DYSPNOEA [None]
